FAERS Safety Report 8499497-X (Version None)
Quarter: 2012Q3

REPORT INFORMATION
  Report Type: 
  Country: None (occurrence: None)
  Receive Date: 20120710
  Receipt Date: 20120628
  Transmission Date: 20120928
  Serious: Yes (Other)
  Sender: FDA-Public Use
  Company Number: US-ELI_LILLY_AND_COMPANY-US201201009117

PATIENT
  Sex: Female
  Weight: 58.957 kg

DRUGS (3)
  1. PREDNISONE TAB [Concomitant]
     Indication: SYSTEMIC LUPUS ERYTHEMATOSUS
     Dosage: UNK, QD
  2. FORTEO [Suspect]
     Dosage: 20 UG, QD
     Route: 065
  3. SOLU-MEDROL [Concomitant]
     Indication: SYSTEMIC LUPUS ERYTHEMATOSUS
     Dosage: UNK, UNKNOWN

REACTIONS (1)
  - OSTEONECROSIS [None]
